FAERS Safety Report 19946335 (Version 1)
Quarter: 2021Q4

REPORT INFORMATION
  Report Type: Report from Study
  Country: None (occurrence: NL)
  Receive Date: 20211013
  Receipt Date: 20211013
  Transmission Date: 20220303
  Serious: Yes (Death)
  Sender: FDA-Public Use
  Company Number: NL-ABBVIE-21K-114-4116496-00

PATIENT
  Age: 77 Year
  Sex: Male

DRUGS (18)
  1. CARBIDOPA\LEVODOPA [Suspect]
     Active Substance: CARBIDOPA\LEVODOPA
     Indication: Parkinson^s disease
     Dosage: MD 3.0 ML CD 3.6 ML/H ED 1.0 ML ND 8.8 ML END 1.0 ML CND 1.8 ML/H
     Route: 050
     Dates: start: 20210111, end: 2021
  2. CARBIDOPA\LEVODOPA [Suspect]
     Active Substance: CARBIDOPA\LEVODOPA
     Dosage: CD: 3.9ML/H
     Route: 050
     Dates: start: 2021, end: 2021
  3. CARBIDOPA\LEVODOPA [Suspect]
     Active Substance: CARBIDOPA\LEVODOPA
     Dosage: CND:2.1ML/H
     Route: 050
     Dates: start: 2021, end: 2021
  4. CARBIDOPA\LEVODOPA [Suspect]
     Active Substance: CARBIDOPA\LEVODOPA
     Dosage: ND 8.8 END 1.0 ML CND 2.3 ML/H
     Route: 050
     Dates: start: 2021, end: 2021
  5. CARBIDOPA\LEVODOPA [Suspect]
     Active Substance: CARBIDOPA\LEVODOPA
     Dosage: CND 2.5 ML/H
     Route: 050
     Dates: start: 2021, end: 2021
  6. CARBIDOPA\LEVODOPA [Suspect]
     Active Substance: CARBIDOPA\LEVODOPA
     Dosage: MD: 8.8 ML, CD: 4.1 ML/H, ED: 1.0 ML; CND: 2.7ML/H
     Route: 050
     Dates: start: 2021, end: 2021
  7. CARBIDOPA\LEVODOPA [Suspect]
     Active Substance: CARBIDOPA\LEVODOPA
     Dosage: MD: 3.0 ML, CD: 4.3 ML/H, ED: 1.5 ML, ND: 8.8ML, END: 1.0ML, CND: 2.9ML/H
     Route: 050
     Dates: start: 2021, end: 2021
  8. CARBIDOPA\LEVODOPA [Suspect]
     Active Substance: CARBIDOPA\LEVODOPA
     Dosage: MD: 3.0 ML, CD: 4.3 ML/H, ED: 1.5 ML
     Route: 050
     Dates: start: 2021, end: 2021
  9. CARBIDOPA\LEVODOPA [Suspect]
     Active Substance: CARBIDOPA\LEVODOPA
     Dosage: MD: 3.0 ML, CD: 4.6 ML/H, ED: 1.5 ML, ND: 8.8ML,, END: 1.0ML, CND: 3.1ML/H
     Route: 050
     Dates: start: 2021, end: 2021
  10. CARBIDOPA\LEVODOPA [Suspect]
     Active Substance: CARBIDOPA\LEVODOPA
     Dosage: CD:4.8ML/H, ED:1.7ML, END:1.2ML, CND:3.3ML/H
     Route: 050
     Dates: start: 2021, end: 2021
  11. CARBIDOPA\LEVODOPA [Suspect]
     Active Substance: CARBIDOPA\LEVODOPA
     Dosage: MD:3ML,CD:5ML/H,ED:1.5ML,ND:8.8ML,CND:3.5ML/H,END:1.2ML
     Route: 050
     Dates: start: 2021, end: 2021
  12. CARBIDOPA\LEVODOPA [Suspect]
     Active Substance: CARBIDOPA\LEVODOPA
     Dosage: MD:8.8ML,CD:4.6ML/H,ED:1.5ML,CND:2.9ML/H
     Route: 050
     Dates: start: 2021, end: 2021
  13. CARBIDOPA\LEVODOPA [Suspect]
     Active Substance: CARBIDOPA\LEVODOPA
     Dosage: CD: 5.2 ML/H
     Route: 050
     Dates: start: 2021, end: 2021
  14. CARBIDOPA\LEVODOPA [Suspect]
     Active Substance: CARBIDOPA\LEVODOPA
     Dosage: CND: 3.7 ML/H
     Route: 050
     Dates: start: 2021, end: 2021
  15. CARBIDOPA\LEVODOPA [Suspect]
     Active Substance: CARBIDOPA\LEVODOPA
     Dosage: ND:8.8 ML, CND:4.0 ML/H, END: 1.2 ML
     Route: 050
     Dates: start: 2021
  16. NEUPRO [Concomitant]
     Active Substance: ROTIGOTINE
     Indication: Parkinson^s disease
     Route: 062
  17. RIVASTIGMINE [Concomitant]
     Active Substance: RIVASTIGMINE
     Indication: Parkinson^s disease
     Route: 062
  18. LACTULOSE [Concomitant]
     Active Substance: LACTULOSE
     Indication: Defaecation disorder

REACTIONS (1)
  - General physical health deterioration [Fatal]

NARRATIVE: CASE EVENT DATE: 20210101
